FAERS Safety Report 23445107 (Version 1)
Quarter: 2024Q1

REPORT INFORMATION
  Report Type: Spontaneous
  Country: US (occurrence: US)
  Receive Date: 20240125
  Receipt Date: 20240125
  Transmission Date: 20240410
  Serious: Yes (Death, Other)
  Sender: FDA-Public Use
  Company Number: US-BRISTOL-MYERS SQUIBB COMPANY-2024-013685

PATIENT
  Age: 83 Year
  Sex: Female
  Weight: 75.6 kg

DRUGS (1)
  1. ELIQUIS [Suspect]
     Active Substance: APIXABAN
     Indication: Plasma cell myeloma
     Route: 048

REACTIONS (2)
  - Death [Fatal]
  - Off label use [Unknown]
